FAERS Safety Report 11212940 (Version 1)
Quarter: 2015Q2

REPORT INFORMATION
  Report Type: Spontaneous
  Country: GR (occurrence: GR)
  Receive Date: 20150623
  Receipt Date: 20150623
  Transmission Date: 20150821
  Serious: Yes (Hospitalization)
  Sender: FDA-Public Use
  Company Number: GR-009507513-1506GRC009512

PATIENT
  Age: 70 Year
  Sex: Male

DRUGS (1)
  1. INEGY [Suspect]
     Active Substance: EZETIMIBE\SIMVASTATIN
     Indication: DYSLIPIDAEMIA
     Dosage: 1 TABLET QD
     Route: 048
     Dates: start: 2011

REACTIONS (1)
  - Arteriosclerosis [Unknown]

NARRATIVE: CASE EVENT DATE: 20150610
